FAERS Safety Report 14020102 (Version 1)
Quarter: 2017Q3

REPORT INFORMATION
  Report Type: Spontaneous
  Country: TR (occurrence: TR)
  Receive Date: 20170928
  Receipt Date: 20170928
  Transmission Date: 20171128
  Serious: Yes (Other)
  Sender: FDA-Public Use
  Company Number: PHHY2017TR140188

PATIENT

DRUGS (1)
  1. ACZ885 [Suspect]
     Active Substance: CANAKINUMAB
     Indication: SECONDARY AMYLOIDOSIS
     Route: 065

REACTIONS (3)
  - End stage renal disease [Unknown]
  - Proteinuria [Unknown]
  - Product use in unapproved indication [Unknown]
